FAERS Safety Report 4510132-5 (Version None)
Quarter: 2004Q4

REPORT INFORMATION
  Report Type: 
  Country: None (occurrence: None)
  Receive Date: 20041124
  Receipt Date: 20041116
  Transmission Date: 20050328
  Serious: Yes (Hospitalization)
  Sender: FDA-Public Use
  Company Number: JP-JNJFOC-20040808331

PATIENT
  Sex: Female
  Weight: 60 kg

DRUGS (14)
  1. REMICADE [Suspect]
     Route: 042
  2. REMICADE [Suspect]
     Route: 042
  3. REMICADE [Suspect]
     Route: 042
  4. REMICADE [Suspect]
     Route: 042
  5. REMICADE [Suspect]
     Route: 042
  6. REMICADE [Suspect]
     Indication: RHEUMATOID ARTHRITIS
     Route: 042
  7. RHEUMATREX [Concomitant]
     Indication: RHEUMATOID ARTHRITIS
     Dosage: APPROXIMATELY
     Route: 049
  8. PREDONIN [Concomitant]
     Route: 049
  9. LOXONIN [Concomitant]
     Route: 049
  10. KETOPROFEN [Concomitant]
  11. CYTOTEC [Concomitant]
     Route: 049
  12. FAMOTIDINE [Concomitant]
     Route: 049
  13. COLINORM [Concomitant]
     Route: 049
  14. MAZUREN S [Concomitant]
     Dosage: 2 GRAMS
     Route: 049

REACTIONS (4)
  - DIARRHOEA [None]
  - HEPATIC FUNCTION ABNORMAL [None]
  - PYREXIA [None]
  - TUBERCULOSIS [None]
